FAERS Safety Report 24751342 (Version 1)
Quarter: 2024Q4

REPORT INFORMATION
  Report Type: Spontaneous
  Country: GB (occurrence: NL)
  Receive Date: 20241219
  Receipt Date: 20241219
  Transmission Date: 20250114
  Serious: Yes (Other)
  Sender: TWI PHARMACEUTICALS
  Company Number: GB-TWI PHARMACEUTICAL, INC-20241200266

PATIENT
  Age: 44 Year
  Sex: Male

DRUGS (1)
  1. DIMETHYL FUMARATE [Suspect]
     Active Substance: DIMETHYL FUMARATE
     Indication: Relapsing-remitting multiple sclerosis
     Dosage: UNK
     Route: 065

REACTIONS (1)
  - Necrotising retinitis [Recovered/Resolved]
